FAERS Safety Report 19855204 (Version 1)
Quarter: 2021Q3

REPORT INFORMATION
  Report Type: Spontaneous
  Country: NG (occurrence: NG)
  Receive Date: 20210918
  Receipt Date: 20210918
  Transmission Date: 20211014
  Serious: No
  Sender: FDA-Public Use
  Company Number: None

PATIENT
  Age: 73 Year
  Sex: Male
  Weight: 81 kg

DRUGS (5)
  1. MOLOXIDEX (MOXIFLOXACIN + DEXAMETHASONE) [Suspect]
     Active Substance: DEXAMETHASONE SODIUM PHOSPHATE\MOXIFLOXACIN HYDROCHLORIDE
  2. NEVANAC [Suspect]
     Active Substance: NEPAFENAC
     Indication: EYE OPERATION
     Dosage: ?          QUANTITY:1 DROP(S);?
     Route: 047
     Dates: start: 20210607, end: 20210906
  3. SUPERDRUG GENERAL WELLBEING MULTIVITAMINS WILL IRON [Concomitant]
  4. VITACLOX (AMPICILLIN + CLOXACILLIN) [Suspect]
     Active Substance: AMPICILLIN\CLOXACILLIN
  5. MALARIA DRUGS [Concomitant]

REACTIONS (7)
  - Pain [None]
  - Back pain [None]
  - Arthralgia [None]
  - Hair disorder [None]
  - Rash [None]
  - Drug interaction [None]
  - Blood pressure increased [None]
